FAERS Safety Report 10899166 (Version 3)
Quarter: 2015Q1

REPORT INFORMATION
  Report Type: Report from Study
  Country: US (occurrence: US)
  Receive Date: 20150309
  Receipt Date: 20150318
  Transmission Date: 20150721
  Serious: Yes (Other)
  Sender: FDA-Public Use
  Company Number: GXBR2015US000927

PATIENT
  Sex: Female

DRUGS (2)
  1. ENOXAPARIN SODIUM. [Suspect]
     Active Substance: ENOXAPARIN SODIUM
     Indication: ANTICOAGULANT THERAPY
     Dosage: 70 MG, QD
     Route: 058
  2. FOLIC [Concomitant]
     Indication: PRODUCT USED FOR UNKNOWN INDICATION
     Dosage: UNK DF, UNK
     Route: 065

REACTIONS (7)
  - Ischaemic stroke [Unknown]
  - Maternal exposure during pregnancy [Recovered/Resolved]
  - Complication of pregnancy [Unknown]
  - Urinary tract infection [Unknown]
  - Pre-eclampsia [Unknown]
  - Foetal growth restriction [Unknown]
  - Premature delivery [Unknown]
